FAERS Safety Report 6792662-9 (Version None)
Quarter: 2010Q2

REPORT INFORMATION
  Report Type: 
  Country: None (occurrence: None)
  Receive Date: 20100624
  Receipt Date: 20080908
  Transmission Date: 20101027
  Serious: No
  Sender: FDA-Public Use
  Company Number: US-PFIZER INC-2008075651

PATIENT
  Sex: Female
  Weight: 72.727 kg

DRUGS (5)
  1. PROVERA [Suspect]
     Indication: MENOPAUSAL SYMPTOMS
  2. PROVERA [Suspect]
     Indication: HOT FLUSH
  3. CLONAZEPAM [Concomitant]
  4. PREMARIN [Concomitant]
  5. PROMETRIUM [Concomitant]

REACTIONS (1)
  - SOMNOLENCE [None]
